FAERS Safety Report 20638203 (Version 1)
Quarter: 2022Q1

REPORT INFORMATION
  Report Type: Spontaneous
  Country: US (occurrence: None)
  Receive Date: 20220325
  Receipt Date: 20220325
  Transmission Date: 20220423
  Serious: Yes (Other)
  Sender: FDA-Public Use
  Company Number: None

PATIENT
  Age: 67 Year
  Sex: Female
  Weight: 72 kg

DRUGS (11)
  1. PAXLOVID [Suspect]
     Active Substance: NIRMATRELVIR\RITONAVIR
     Indication: COVID-19
     Dosage: OTHER QUANTITY : 2 TABLET(S);?FREQUENCY : TWICE A DAY;?
     Route: 048
     Dates: start: 20220319, end: 20220320
  2. Metformin 1000 x 2 [Concomitant]
  3. Atorvastatin 20 mg not taken at the time [Concomitant]
  4. LOSARTAN [Concomitant]
     Active Substance: LOSARTAN
  5. HYDROCHLOROTHIAZIDE [Concomitant]
     Active Substance: HYDROCHLOROTHIAZIDE
  6. Alendronate 70mg weekly [Concomitant]
  7. Elderberry gummies [Concomitant]
  8. OMEPRAZOLE [Concomitant]
     Active Substance: OMEPRAZOLE
  9. D3 1000 IU [Concomitant]
  10. Vit C 1000mg [Concomitant]
  11. CALCIUM [Concomitant]
     Active Substance: CALCIUM

REACTIONS (4)
  - Feeling abnormal [None]
  - Tinnitus [None]
  - Hypertension [None]
  - Dysgeusia [None]

NARRATIVE: CASE EVENT DATE: 20220320
